FAERS Safety Report 12508861 (Version 2)
Quarter: 2016Q4

REPORT INFORMATION
  Report Type: Spontaneous
  Country: GB (occurrence: GB)
  Receive Date: 20160629
  Receipt Date: 20161208
  Transmission Date: 20170207
  Serious: Yes (Other)
  Sender: FDA-Public Use
  Company Number: GB-PFIZER INC-2016309284

PATIENT
  Age: 50 Year
  Sex: Female
  Weight: 83 kg

DRUGS (3)
  1. AMLODIPINE BESILATE [Suspect]
     Active Substance: AMLODIPINE BESYLATE
     Indication: HYPERTENSION
     Dosage: 5 MG, UNK
     Route: 048
     Dates: start: 20160513, end: 20160527
  2. RAMIPRIL. [Concomitant]
     Active Substance: RAMIPRIL
     Dosage: 2.5 MG, DAILY
  3. RAMIPRIL. [Concomitant]
     Active Substance: RAMIPRIL
     Dosage: 2 56 CAPSULE

REACTIONS (14)
  - Deafness bilateral [Recovered/Resolved with Sequelae]
  - Ear pain [Recovered/Resolved with Sequelae]
  - Swelling face [Unknown]
  - Ear discomfort [Recovered/Resolved with Sequelae]
  - Otitis externa [Unknown]
  - Facial pain [Unknown]
  - Hypoacusis [Recovering/Resolving]
  - Oropharyngeal pain [Unknown]
  - Ear infection [Unknown]
  - Ear pruritus [Unknown]
  - Ear congestion [Unknown]
  - Skin exfoliation [Unknown]
  - Ear canal erythema [Unknown]
  - Tinnitus [Not Recovered/Not Resolved]

NARRATIVE: CASE EVENT DATE: 20160517
